FAERS Safety Report 12448039 (Version 1)
Quarter: 2016Q2

REPORT INFORMATION
  Report Type: Spontaneous
  Country: BR (occurrence: BR)
  Receive Date: 20160608
  Receipt Date: 20160608
  Transmission Date: 20160815
  Serious: Yes (Other)
  Sender: FDA-Public Use
  Company Number: BR-DSJP-DSU-2016-119000

PATIENT

DRUGS (2)
  1. OLMETEC 20 MG [Suspect]
     Active Substance: OLMESARTAN MEDOXOMIL
     Indication: BLOOD PRESSURE ABNORMAL
     Dosage: 20 MG, QD
     Dates: start: 201602, end: 201604
  2. OLMESARTAN MEDOXOMIL. [Suspect]
     Active Substance: OLMESARTAN MEDOXOMIL
     Indication: BLOOD PRESSURE ABNORMAL
     Dosage: UNK
     Dates: start: 201604, end: 20160530

REACTIONS (3)
  - Blood pressure increased [Unknown]
  - Treatment noncompliance [Not Recovered/Not Resolved]
  - Dengue fever [Unknown]

NARRATIVE: CASE EVENT DATE: 201602
